FAERS Safety Report 4589389-0 (Version None)
Quarter: 2005Q1

REPORT INFORMATION
  Report Type: 
  Country: None (occurrence: None)
  Receive Date: 20050216
  Receipt Date: 20050203
  Transmission Date: 20050727
  Serious: Yes (Hospitalization)
  Sender: FDA-Public Use
  Company Number: 2005-BP-01788BP

PATIENT
  Age: 88 Year
  Sex: Male

DRUGS (5)
  1. FLOMAX [Suspect]
     Dosage: SEE IMAGE
     Route: 048
     Dates: start: 20040101, end: 20040101
  2. FLOMAX [Suspect]
     Dosage: SEE IMAGE
     Route: 048
     Dates: start: 20041201
  3. FLOMAX [Suspect]
     Dosage: SEE IMAGE
     Route: 048
     Dates: start: 20041201
  4. FLOMAX [Suspect]
     Dosage: SEE IMAGE
     Route: 048
     Dates: start: 20050101
  5. COUMADIN [Suspect]
     Dosage: SEE TEXT (3 MG AND 4 MG EVERY OTHER DAY)

REACTIONS (5)
  - ARTHRALGIA [None]
  - DYSURIA [None]
  - HAEMARTHROSIS [None]
  - INTERNATIONAL NORMALISED RATIO INCREASED [None]
  - POLLAKIURIA [None]
